FAERS Safety Report 14438323 (Version 3)
Quarter: 2018Q1

REPORT INFORMATION
  Report Type: Spontaneous
  Country: US (occurrence: US)
  Receive Date: 20180125
  Receipt Date: 20180322
  Transmission Date: 20180509
  Serious: No
  Sender: FDA-Public Use
  Company Number: US-PFIZER INC-2018031009

PATIENT
  Age: 66 Year
  Sex: Female

DRUGS (1)
  1. IBRANCE [Suspect]
     Active Substance: PALBOCICLIB
     Indication: BREAST CANCER
     Dosage: 125 MG, CYCLIC, (DAILY (QD) DAY 21/28)
     Route: 048
     Dates: start: 20170913, end: 201801

REACTIONS (3)
  - Fatigue [Recovered/Resolved]
  - Malaise [Unknown]
  - Loss of personal independence in daily activities [Recovering/Resolving]
